FAERS Safety Report 18123777 (Version 1)
Quarter: 2020Q3

REPORT INFORMATION
  Report Type: Spontaneous
  Country: DE (occurrence: DE)
  Receive Date: 20200807
  Receipt Date: 20200807
  Transmission Date: 20201103
  Serious: Yes (Hospitalization, Disabling, Other)
  Sender: FDA-Public Use
  Company Number: NVSC2020DE219162

PATIENT
  Age: 51 Year
  Sex: Female

DRUGS (12)
  1. PREDNISOLONE. [Suspect]
     Active Substance: PREDNISOLONE
     Indication: BRONCHITIS
  2. TARIVID [Suspect]
     Active Substance: OFLOXACIN
     Indication: BRONCHITIS
  3. TARIVID [Suspect]
     Active Substance: OFLOXACIN
     Indication: SINUSITIS
  4. DOLO?DOBENDAN [Concomitant]
     Active Substance: BENZOCAINE\CETYLPYRIDINIUM CHLORIDE
     Indication: BRONCHITIS
  5. DOLO?DOBENDAN [Concomitant]
     Active Substance: BENZOCAINE\CETYLPYRIDINIUM CHLORIDE
     Indication: UPPER-AIRWAY COUGH SYNDROME
  6. DOLO?DOBENDAN [Concomitant]
     Active Substance: BENZOCAINE\CETYLPYRIDINIUM CHLORIDE
     Indication: TRACHEITIS
  7. PREDNISOLONE. [Suspect]
     Active Substance: PREDNISOLONE
     Indication: SINUSITIS
  8. PREDNISOLONE. [Suspect]
     Active Substance: PREDNISOLONE
     Indication: UPPER-AIRWAY COUGH SYNDROME
     Route: 065
  9. PREDNISOLONE. [Suspect]
     Active Substance: PREDNISOLONE
     Indication: TRACHEITIS
  10. TARIVID [Suspect]
     Active Substance: OFLOXACIN
     Indication: TRACHEITIS
     Route: 065
  11. TARIVID [Suspect]
     Active Substance: OFLOXACIN
     Indication: UPPER-AIRWAY COUGH SYNDROME
  12. DOLO?DOBENDAN [Concomitant]
     Active Substance: BENZOCAINE\CETYLPYRIDINIUM CHLORIDE
     Indication: SINUSITIS
     Route: 065

REACTIONS (95)
  - Fibromyalgia [Unknown]
  - Sjogren^s syndrome [Unknown]
  - Muscle hypertrophy [Unknown]
  - Bradycardia [Unknown]
  - Vitamin D deficiency [Unknown]
  - Ligament pain [Unknown]
  - Aphasia [Unknown]
  - Decreased activity [Unknown]
  - Abdominal pain [Unknown]
  - Patellofemoral pain syndrome [Unknown]
  - Arthropathy [Unknown]
  - Rotator cuff syndrome [Unknown]
  - Muscular weakness [Unknown]
  - Anxiety [Unknown]
  - Nausea [Unknown]
  - Tendon rupture [Unknown]
  - Loss of personal independence in daily activities [Unknown]
  - Bedridden [Unknown]
  - Headache [Unknown]
  - Renal disorder [Unknown]
  - Dysbiosis [Unknown]
  - Myofascial pain syndrome [Unknown]
  - Asthenia [Not Recovered/Not Resolved]
  - Tendon disorder [Unknown]
  - Arthritis [Unknown]
  - Intervertebral disc space narrowing [Unknown]
  - Depression [Unknown]
  - Myalgia [Unknown]
  - Joint swelling [Unknown]
  - Arrhythmia [Unknown]
  - Toxicity to various agents [Unknown]
  - Fatigue [Not Recovered/Not Resolved]
  - Tendon pain [Unknown]
  - Ligament rupture [Unknown]
  - Disturbance in attention [Unknown]
  - Mucosal inflammation [Unknown]
  - Arthralgia [Unknown]
  - Tendonitis [Unknown]
  - Drug ineffective [Unknown]
  - Impaired work ability [Unknown]
  - Unevaluable event [Unknown]
  - Foot deformity [Unknown]
  - Sleep disorder [Unknown]
  - Vitreous detachment [Unknown]
  - Exostosis [Unknown]
  - Meniscus injury [Unknown]
  - Dermatitis bullous [Unknown]
  - Mitochondrial cytopathy [Unknown]
  - Diverticulitis [Unknown]
  - Mental disorder [Unknown]
  - Gastroenteritis [Unknown]
  - Photophobia [Unknown]
  - Gait disturbance [Unknown]
  - Irritable bowel syndrome [Unknown]
  - Cubital tunnel syndrome [Unknown]
  - Muscle rigidity [Unknown]
  - Pain [Unknown]
  - Disability [Unknown]
  - Polyneuropathy [Unknown]
  - Talipes [Unknown]
  - Cataract [Unknown]
  - Malaise [Unknown]
  - Pain in extremity [Unknown]
  - Chronic fatigue syndrome [Unknown]
  - Feeling abnormal [Unknown]
  - Gluten sensitivity [Unknown]
  - Dizziness [Unknown]
  - Sensory processing disorder [Unknown]
  - Respiratory tract inflammation [Unknown]
  - Discomfort [Unknown]
  - Muscle twitching [Unknown]
  - Muscle atrophy [Unknown]
  - Tendonitis [Unknown]
  - Arthralgia [Unknown]
  - Muscle tightness [Unknown]
  - Suicidal ideation [Unknown]
  - Anal fissure [Unknown]
  - Somnolence [Unknown]
  - Soft tissue disorder [Unknown]
  - Hypoaesthesia [Unknown]
  - Head discomfort [Unknown]
  - Panic attack [Unknown]
  - Epicondylitis [Unknown]
  - Synovial cyst [Unknown]
  - Infection susceptibility increased [Unknown]
  - Candida infection [Unknown]
  - Paraesthesia [Unknown]
  - Stress [Unknown]
  - Tendon pain [Unknown]
  - Nervous system disorder [Unknown]
  - Condition aggravated [Unknown]
  - Osteoarthritis [Unknown]
  - Costochondritis [Unknown]
  - Glucose tolerance impaired [Unknown]
  - Weight increased [Unknown]

NARRATIVE: CASE EVENT DATE: 2015
